FAERS Safety Report 24468471 (Version 3)
Quarter: 2024Q4

REPORT INFORMATION
  Report Type: Spontaneous
  Country: US (occurrence: US)
  Receive Date: 20241018
  Receipt Date: 20241106
  Transmission Date: 20250114
  Serious: No
  Sender: PFIZER
  Company Number: US-PFIZER INC-202400279751

PATIENT
  Age: 73 Year
  Sex: Male

DRUGS (10)
  1. INLYTA [Suspect]
     Active Substance: AXITINIB
     Dosage: 5 MG, 2X/DAY
     Route: 048
     Dates: start: 20241011
  2. KEYTRUDA [Concomitant]
     Active Substance: PEMBROLIZUMAB
     Dosage: UNK
  3. NYSTATIN\TRIAMCINOLONE [Concomitant]
     Active Substance: NYSTATIN\TRIAMCINOLONE
     Dosage: UNK
  4. METFORMIN HYDROCHLORIDE [Concomitant]
     Active Substance: METFORMIN HYDROCHLORIDE
     Dosage: UNK
  5. ASPIRIN [Concomitant]
     Active Substance: ASPIRIN
     Dosage: UNK
  6. AMLODIPINE BESYLATE [Concomitant]
     Active Substance: AMLODIPINE BESYLATE
     Dosage: UNK
  7. OLMESARTAN MEDOXOMIL [Concomitant]
     Active Substance: OLMESARTAN MEDOXOMIL
     Dosage: UNK
  8. ROSUVASTATIN CALCIUM [Concomitant]
     Active Substance: ROSUVASTATIN CALCIUM
     Dosage: UNK
  9. LOPERAMIDE [Concomitant]
     Active Substance: LOPERAMIDE
     Dosage: UNK
  10. ALENDRONATE SODIUM [Concomitant]
     Active Substance: ALENDRONATE SODIUM
     Dosage: UNK

REACTIONS (7)
  - Pruritus genital [Unknown]
  - Fatigue [Unknown]
  - Somnolence [Unknown]
  - Epistaxis [Recovered/Resolved]
  - Acne [Not Recovered/Not Resolved]
  - Lentigo [Not Recovered/Not Resolved]
  - Pruritus [Not Recovered/Not Resolved]

NARRATIVE: CASE EVENT DATE: 20241017
